FAERS Safety Report 10162769 (Version 2)
Quarter: 2014Q2

REPORT INFORMATION
  Report Type: Spontaneous
  Country: US (occurrence: US)
  Receive Date: 20140509
  Receipt Date: 20140520
  Transmission Date: 20141212
  Serious: Yes (Other)
  Sender: FDA-Public Use
  Company Number: US-BAXTER-2014BAX022571

PATIENT
  Sex: Male

DRUGS (2)
  1. GAMMAGARD LIQUID [Suspect]
     Indication: IMMUNODEFICIENCY
     Dosage: FIRST DOSE, ADMINISTERED AT HOME
     Route: 058
     Dates: start: 2014, end: 2014
  2. GAMMAGARD LIQUID [Suspect]
     Dosage: SECOND DOSE, ADMINISTERED AT PHYSICIAN^S OFFICE
     Route: 058
     Dates: start: 2014, end: 2014

REACTIONS (5)
  - Pruritus [Recovering/Resolving]
  - Chills [Recovering/Resolving]
  - Cold sweat [Recovering/Resolving]
  - Respiratory arrest [Recovering/Resolving]
  - Malaise [Unknown]
